FAERS Safety Report 8135888-4 (Version None)
Quarter: 2012Q1

REPORT INFORMATION
  Report Type: 
  Country: None (occurrence: None)
  Receive Date: 20120214
  Receipt Date: 20120210
  Transmission Date: 20120608
  Serious: Yes (Other)
  Sender: FDA-Public Use
  Company Number: GB-GLAXOSMITHKLINE-B0781021A

PATIENT
  Age: 59 Year
  Sex: Male

DRUGS (2)
  1. LEVODOPA [Concomitant]
  2. REQUIP XL [Suspect]
     Indication: PARKINSON'S DISEASE
     Dosage: 6MG PER DAY
     Route: 065

REACTIONS (2)
  - MALAISE [None]
  - HALLUCINATION [None]
